FAERS Safety Report 9036261 (Version 1)
Quarter: 2013Q1

REPORT INFORMATION
  Report Type: Spontaneous
  Country: US (occurrence: None)
  Receive Date: 20130117
  Receipt Date: 20130117
  Transmission Date: 20140127
  Serious: Yes (Other)
  Sender: FDA-Public Use
  Company Number: None

PATIENT
  Age: 64 Year
  Sex: Female
  Weight: 75.3 kg

DRUGS (1)
  1. AMITRIPTYLINE [Suspect]
     Indication: NEURALGIA
     Dosage: 25 MG 1 QID PO
     Route: 048
     Dates: start: 20130108, end: 20130115

REACTIONS (9)
  - Malaise [None]
  - Nausea [None]
  - Vomiting [None]
  - Headache [None]
  - Dizziness [None]
  - Hyperhidrosis [None]
  - Emotional disorder [None]
  - Crying [None]
  - Hypophagia [None]
